FAERS Safety Report 24338067 (Version 1)
Quarter: 2024Q3

REPORT INFORMATION
  Report Type: Spontaneous
  Country: US (occurrence: US)
  Receive Date: 20240919
  Receipt Date: 20240919
  Transmission Date: 20241017
  Serious: Yes (Death)
  Sender: ROCHE
  Company Number: US-ROCHE-10000083738

PATIENT
  Age: 78 Year
  Sex: Male

DRUGS (2)
  1. COTELLIC [Suspect]
     Active Substance: COBIMETINIB
     Indication: Erdheim-Chester disease
     Dosage: STRENGTH: 20 MG?FREQUENCY: 3 WEEKS ON, 1 WEEK OFF
     Route: 065
     Dates: start: 20240210, end: 20240520
  2. COTELLIC [Suspect]
     Active Substance: COBIMETINIB
     Indication: Metabolic disorder

REACTIONS (1)
  - Death [Fatal]

NARRATIVE: CASE EVENT DATE: 20240817
